FAERS Safety Report 8128831-5 (Version None)
Quarter: 2012Q1

REPORT INFORMATION
  Report Type: 
  Country: None (occurrence: None)
  Receive Date: 20120210
  Receipt Date: 20110323
  Transmission Date: 20120608
  Serious: No
  Sender: FDA-Public Use
  Company Number: US-BRISTOL-MYERS SQUIBB COMPANY-15627722

PATIENT
  Age: 58 Year
  Sex: Female
  Weight: 63 kg

DRUGS (8)
  1. ORENCIA [Suspect]
     Dosage: LAST INF ON 18FEB2011
     Dates: start: 20110121
  2. IBUPROFEN [Concomitant]
  3. PREDNISONE TAB [Suspect]
  4. LEFLUNOMIDE [Suspect]
  5. FLUOXETINE [Concomitant]
  6. METOCLOPRAMIDE [Concomitant]
     Dosage: METOPROLOL ER TABLETS
  7. NEXIUM [Concomitant]
  8. HYDROQUINONE [Concomitant]
     Dosage: 1DF=7.5/75 (UNITS NOT MENTIONED)

REACTIONS (3)
  - NASOPHARYNGITIS [None]
  - THROAT IRRITATION [None]
  - PARANASAL SINUS HYPERSECRETION [None]
